FAERS Safety Report 8057016 (Version 2)
Quarter: 2014Q1

REPORT INFORMATION
  Report Type: Spontaneous
  Country: IT (occurrence: IT)
  Receive Date: 20110727
  Receipt Date: 20140225
  Transmission Date: 20141002
  Serious: Yes (Hospitalization)
  Sender: FDA-Public Use
  Company Number: PHHY2011IT65346

PATIENT
  Age: 62 Year
  Sex: Female

DRUGS (3)
  1. VALPROIC ACID [Suspect]
     Indication: MOOD ALTERED
     Dosage: 500 MG, BID
     Dates: start: 200906
  2. DISULFIRAM [Suspect]
     Indication: ALCOHOLISM
     Dosage: 400 MG PER DAY
     Dates: start: 200906
  3. GAMMA HYDROXYBUTYRIC ACID [Interacting]
     Indication: ALCOHOLISM
     Dosage: 3500 MG PER DAY (46 MG/KG/DAY )

REACTIONS (15)
  - Affective disorder [Recovered/Resolved]
  - Hypomania [Recovered/Resolved]
  - Memory impairment [Recovered/Resolved]
  - Attention deficit/hyperactivity disorder [Recovered/Resolved]
  - Confabulation [Recovered/Resolved]
  - Confusional state [Recovered/Resolved]
  - Psychotic behaviour [Recovered/Resolved]
  - Delusion [Recovered/Resolved]
  - Dysphoria [Recovered/Resolved]
  - Grand mal convulsion [Recovered/Resolved]
  - Hepatic enzyme increased [Recovered/Resolved]
  - Aspartate aminotransferase increased [Unknown]
  - Alanine aminotransferase increased [Unknown]
  - Gamma-glutamyltransferase increased [Unknown]
  - Drug interaction [Recovered/Resolved]
